FAERS Safety Report 9193820 (Version 2)
Quarter: 2013Q2

REPORT INFORMATION
  Report Type: Spontaneous
  Country: US (occurrence: None)
  Receive Date: 20120703
  Receipt Date: 20121031
  Transmission Date: 20140414
  Serious: No
  Sender: FDA-Public Use
  Company Number: PHEH2012US006416

PATIENT
  Age: 44 Year
  Sex: Female
  Weight: 77.1 kg

DRUGS (1)
  1. GILENYA (FTY) CAPSULE, 0.5MG [Suspect]
     Indication: MULTIPLE SCLEROSIS
     Route: 048
     Dates: start: 20120315

REACTIONS (6)
  - Sneezing [None]
  - Dysphonia [None]
  - Oropharyngeal pain [None]
  - Cough [None]
  - Communication disorder [None]
  - Memory impairment [None]
